FAERS Safety Report 7283913-5 (Version None)
Quarter: 2011Q1

REPORT INFORMATION
  Report Type: 
  Country: None (occurrence: None)
  Receive Date: 20110209
  Receipt Date: 20110204
  Transmission Date: 20110831
  Serious: Yes (Hospitalization, Other)
  Sender: FDA-Public Use
  Company Number: GXKR2009DE12223

PATIENT
  Sex: Male

DRUGS (2)
  1. DOXY 1A PHARMA [Suspect]
     Indication: BRONCHITIS
     Dosage: 200 MG/DAY
     Route: 048
     Dates: start: 20091024, end: 20091029
  2. DOXY 1A PHARMA [Suspect]
     Indication: LARYNGITIS

REACTIONS (7)
  - HEADACHE [None]
  - NAUSEA [None]
  - AGEUSIA [None]
  - ANOSMIA [None]
  - JOB CHANGE [None]
  - SUICIDE ATTEMPT [None]
  - MENTAL DISORDER [None]
